FAERS Safety Report 21980807 (Version 1)
Quarter: 2023Q1

REPORT INFORMATION
  Report Type: Report from Study
  Country: BE (occurrence: BE)
  Receive Date: 20230211
  Receipt Date: 20230211
  Transmission Date: 20230417
  Serious: Yes (Other)
  Sender: FDA-Public Use
  Company Number: BE-ABBVIE-4301900

PATIENT
  Age: 66 Year
  Sex: Female
  Weight: 65 kg

DRUGS (22)
  1. UPADACITINIB [Suspect]
     Active Substance: UPADACITINIB
     Indication: Rheumatoid arthritis
     Route: 048
     Dates: start: 20220817
  2. UPADACITINIB [Suspect]
     Active Substance: UPADACITINIB
     Indication: Rheumatoid arthritis
     Route: 048
     Dates: start: 20210106, end: 20220814
  3. AUGMENTIN [Concomitant]
     Active Substance: AMOXICILLIN\CLAVULANATE POTASSIUM
     Indication: Peritonitis
     Dosage: TIME INTERVAL: 0.33333333 DAYS
     Route: 048
     Dates: start: 20221223, end: 20221229
  4. DEPO-MEDROL [Concomitant]
     Active Substance: METHYLPREDNISOLONE ACETATE
     Indication: Trigger finger
     Route: 058
     Dates: start: 20210223, end: 20210223
  5. DEPO-MEDROL [Concomitant]
     Active Substance: METHYLPREDNISOLONE ACETATE
     Indication: Trigger finger
     Route: 058
     Dates: start: 20220111, end: 20220111
  6. METHYLPREDNISOLONE [Concomitant]
     Active Substance: METHYLPREDNISOLONE
     Indication: Rheumatoid arthritis
     Dosage: 2 MILLIGRAM
     Route: 048
     Dates: start: 20021209, end: 20210112
  7. PANTOPRAZOLE SODIUM [Concomitant]
     Active Substance: PANTOPRAZOLE SODIUM
     Indication: Prophylaxis
     Dosage: 40 MILLIGRAM
     Route: 048
     Dates: start: 20210223
  8. LEFLUNOMIDE GA [Concomitant]
     Indication: Rheumatoid arthritis
     Dosage: 20 MILLIGRAM
     Route: 048
     Dates: start: 20200915, end: 20210106
  9. METHOTREXATE [Concomitant]
     Active Substance: METHOTREXATE
     Indication: Rheumatoid arthritis
     Route: 048
     Dates: start: 20220104, end: 20220706
  10. METHOTREXATE [Concomitant]
     Active Substance: METHOTREXATE
     Indication: Rheumatoid arthritis
     Route: 048
     Dates: start: 20200825, end: 20211109
  11. METHOTREXATE [Concomitant]
     Active Substance: METHOTREXATE
     Indication: Rheumatoid arthritis
     Route: 048
     Dates: start: 20211110, end: 20220103
  12. METHOTREXATE [Concomitant]
     Active Substance: METHOTREXATE
     Indication: Rheumatoid arthritis
     Route: 048
     Dates: start: 20220822
  13. PROLIA [Concomitant]
     Active Substance: DENOSUMAB
     Indication: Osteoporosis
     Route: 058
     Dates: start: 20200424
  14. ATORVASTATIN [Concomitant]
     Active Substance: ATORVASTATIN
     Indication: Hyperlipidaemia
     Dosage: 20 MILLIGRAM
     Route: 048
     Dates: start: 2017
  15. FOLIC ACID [Concomitant]
     Active Substance: FOLIC ACID
     Indication: Rheumatoid arthritis
     Dosage: WEEKLY
     Route: 048
     Dates: start: 20220823
  16. FOLIC ACID [Concomitant]
     Active Substance: FOLIC ACID
     Indication: Rheumatoid arthritis
     Dosage: WEEKLY
     Route: 048
     Dates: start: 20200319, end: 20220707
  17. SARS-CoV-2 vaccine (vero cell), inactivada [Concomitant]
     Indication: COVID-19 prophylaxis
     Dates: start: 20210427, end: 20210427
  18. SARS-CoV-2 vaccine (vero cell), inactivada [Concomitant]
     Indication: COVID-19 prophylaxis
     Dates: start: 20210716, end: 20210716
  19. SARS-CoV-2 vaccine (vero cell), inactivada [Concomitant]
     Indication: COVID-19 prophylaxis
     Dates: start: 20220303, end: 20220303
  20. SARS-CoV-2 vaccine (vero cell), inactivada [Concomitant]
     Indication: COVID-19 prophylaxis
     Dates: start: 20210930, end: 20210930
  21. SARS-CoV-2 vaccine (vero cell), inactivada [Concomitant]
     Indication: COVID-19 prophylaxis
     Dates: start: 20220927, end: 20220927
  22. STEOVIT FORTE [Concomitant]
     Indication: Osteoporosis
     Dosage: 1 TABLET
     Route: 048
     Dates: start: 20200424

REACTIONS (1)
  - Peritonitis [Recovered/Resolved]

NARRATIVE: CASE EVENT DATE: 20221222
